FAERS Safety Report 16090271 (Version 2)
Quarter: 2019Q2

REPORT INFORMATION
  Report Type: Spontaneous
  Country: BE (occurrence: BE)
  Receive Date: 20190319
  Receipt Date: 20190401
  Transmission Date: 20190711
  Serious: Yes (Death, Hospitalization, Other)
  Sender: FDA-Public Use
  Company Number: IND-BE-009507513-1901BEL008983

PATIENT
  Sex: Male
  Weight: 130 kg

DRUGS (1)
  1. ESMERON [Suspect]
     Active Substance: ROCURONIUM BROMIDE
     Indication: ANAESTHESIA
     Dosage: UNK

REACTIONS (3)
  - Cardiac arrest [Unknown]
  - Anaphylactic shock [Fatal]
  - Brain injury [Fatal]
